FAERS Safety Report 15986262 (Version 2)
Quarter: 2019Q1

REPORT INFORMATION
  Report Type: Spontaneous
  Country: GB (occurrence: GB)
  Receive Date: 20190220
  Receipt Date: 20190227
  Transmission Date: 20190418
  Serious: Yes (Hospitalization)
  Sender: FDA-Public Use
  Company Number: GB-009507513-1902GBR006892

PATIENT
  Sex: Male

DRUGS (1)
  1. KEYTRUDA [Suspect]
     Active Substance: PEMBROLIZUMAB
     Indication: NON-SMALL CELL LUNG CANCER
     Dosage: 3 TIMES PER WEEK: 36 TREATMENTS
     Route: 042
     Dates: start: 20161109, end: 20181109

REACTIONS (4)
  - Inappropriate schedule of product administration [Unknown]
  - Swelling face [Unknown]
  - Intra-abdominal fluid collection [Unknown]
  - Asthenia [Unknown]

NARRATIVE: CASE EVENT DATE: 20161109
